FAERS Safety Report 16456186 (Version 1)
Quarter: 2019Q2

REPORT INFORMATION
  Report Type: Report from Study
  Country: BE (occurrence: BE)
  Receive Date: 20190620
  Receipt Date: 20190620
  Transmission Date: 20190711
  Serious: Yes (Life-Threatening, Hospitalization, Other)
  Sender: FDA-Public Use
  Company Number: BE-ACCORD-132938

PATIENT

DRUGS (2)
  1. ETOPOSIDE. [Suspect]
     Active Substance: ETOPOSIDE
     Indication: NON-SMALL CELL LUNG CANCER
     Dosage: ON DAYS 1-5 AND 29-33
     Route: 042
  2. CISPLATIN. [Suspect]
     Active Substance: CISPLATIN
     Indication: NON-SMALL CELL LUNG CANCER
     Dosage: ON DAYS 1, 8, 29 AND 36
     Route: 042

REACTIONS (1)
  - Pulmonary toxicity [Unknown]
